FAERS Safety Report 8979189 (Version 1)
Quarter: 2012Q4

REPORT INFORMATION
  Report Type: 
  Country: US (occurrence: US)
  Receive Date: 20121221
  Receipt Date: 20121221
  Transmission Date: 20130627
  Serious: Yes (Other)
  Sender: FDA-Public Use
  Company Number: US-PFIZER INC-2012320307

PATIENT
  Age: 51 Year
  Sex: Female

DRUGS (5)
  1. EFFEXOR [Suspect]
     Indication: DEPRESSION
     Dosage: 37.5 mg, 1x/day
     Route: 048
     Dates: start: 20121206
  2. VIIBRYD [Suspect]
     Indication: DEPRESSION
     Dosage: 10 mg, 1x/day
     Route: 048
     Dates: start: 20121118, end: 20121124
  3. VIIBRYD [Suspect]
     Dosage: 20 mg, 1x/day
     Route: 048
     Dates: start: 20121125, end: 20121201
  4. VIIBRYD [Suspect]
     Dosage: 40 mg, 1x/day
     Route: 048
     Dates: start: 20121202, end: 20121202
  5. WELLBUTRIN [Concomitant]
     Indication: DEPRESSION
     Dosage: 150 mg, 2x/day

REACTIONS (2)
  - Hyperhidrosis [Not Recovered/Not Resolved]
  - Dizziness [Not Recovered/Not Resolved]
